FAERS Safety Report 6741168-1 (Version None)
Quarter: 2010Q2

REPORT INFORMATION
  Report Type: 
  Country: None (occurrence: None)
  Receive Date: 20100526
  Receipt Date: 20100518
  Transmission Date: 20101027
  Serious: Yes (Hospitalization)
  Sender: FDA-Public Use
  Company Number: DE-JNJFOC-20100506502

PATIENT
  Age: 39 Year
  Sex: Female

DRUGS (3)
  1. REMICADE [Suspect]
     Indication: PSORIATIC ARTHROPATHY
     Route: 042
  2. METEX [Concomitant]
     Indication: PSORIATIC ARTHROPATHY
     Route: 058
  3. FOLSAN [Concomitant]
     Route: 048

REACTIONS (1)
  - CERVIX CARCINOMA STAGE 0 [None]
